FAERS Safety Report 14016605 (Version 2)
Quarter: 2017Q4

REPORT INFORMATION
  Report Type: Report from Study
  Country: CN (occurrence: CN)
  Receive Date: 20170927
  Receipt Date: 20171006
  Transmission Date: 20180321
  Serious: Yes (Hospitalization)
  Sender: FDA-Public Use
  Company Number: CN-PFIZER INC-2017369756

PATIENT
  Age: 58 Year
  Sex: Female
  Weight: 62 kg

DRUGS (15)
  1. AROMASIN [Suspect]
     Active Substance: EXEMESTANE
     Indication: INVASIVE BREAST CARCINOMA
     Dosage: 25 MG, 1X/DAY
     Route: 048
     Dates: start: 20150908
  2. NAO XIN TONG [Concomitant]
     Indication: CARDIOVASCULAR DISORDER
  3. SODIUM OZAGREL [Concomitant]
     Active Substance: OZAGREL SODIUM
     Indication: CEREBRAL INFARCTION
     Dosage: 80 MG, 1X/DAY
     Route: 041
     Dates: start: 20170609, end: 20170621
  4. EDARAVONE [Concomitant]
     Active Substance: EDARAVONE
     Indication: MOBILITY DECREASED
     Dosage: 30 MG, 2X/DAY
     Route: 041
     Dates: start: 20170611, end: 20170621
  5. MECOBALAMIN [Concomitant]
     Active Substance: METHYLCOBALAMIN
     Indication: NEUROPATHY PERIPHERAL
     Dosage: 500 UG, 3X/DAY
     Route: 048
     Dates: start: 20170611
  6. BACLOFEN. [Concomitant]
     Active Substance: BACLOFEN
     Indication: MUSCLE SPASMS
     Dosage: 5 MG, 3X/DAY
     Route: 048
     Dates: start: 20170613
  7. ASPIRIN (E.C.) [Concomitant]
     Active Substance: ASPIRIN
     Indication: ISCHAEMIC HEART DISEASE PROPHYLAXIS
     Dosage: 0.1 G, 1X/DAY
     Route: 048
     Dates: start: 20170609
  8. LIPITOR [Concomitant]
     Active Substance: ATORVASTATIN CALCIUM
     Indication: HYPERCHOLESTEROLAEMIA
     Dosage: 20 MG, 1X/DAY
     Route: 048
     Dates: start: 20170609
  9. FOLIC ACID. [Concomitant]
     Active Substance: FOLIC ACID
     Indication: ANAEMIA
     Dosage: 5 MG, 1X/DAY
     Route: 048
     Dates: start: 20170610, end: 20170621
  10. CLOPIDOGREL HYDROGEN SULFATE [Concomitant]
     Active Substance: CLOPIDOGREL BISULFATE
     Indication: THROMBOSIS PROPHYLAXIS
     Dosage: 75 MG, 1X/DAY
     Route: 048
     Dates: start: 20170612
  11. OXIRACETAM [Concomitant]
     Active Substance: OXIRACETAM
     Indication: MEMORY IMPAIRMENT
     Dosage: UNK, 1X/DAY
     Route: 041
     Dates: start: 20170608, end: 20170621
  12. NAO XIN TONG [Concomitant]
     Indication: CARDIOVASCULAR DISORDER
     Dosage: 0.8 G, 3X/DAY
     Route: 048
     Dates: start: 20170609
  13. BUTYLPHTHALIDE [Concomitant]
     Active Substance: BUTYLPHTHALIDE
     Indication: ISCHAEMIC STROKE
     Dosage: 0.2 G, 3X/DAY
     Route: 048
     Dates: start: 20170609
  14. VITAMIN B6 [Concomitant]
     Active Substance: PYRIDOXINE HYDROCHLORIDE
     Indication: NUTRITIONAL SUPPLEMENTATION
     Dosage: 10 MG, 1X/DAY
     Route: 048
     Dates: start: 20170611, end: 20170621
  15. XUESHUANTONG [Concomitant]
     Active Substance: HERBALS
     Indication: CARDIOVASCULAR DISORDER
     Dosage: 450 MG, 1X/DAY
     Route: 041
     Dates: start: 20170608, end: 20170621

REACTIONS (1)
  - Cerebral infarction [Recovered/Resolved with Sequelae]

NARRATIVE: CASE EVENT DATE: 20170608
